FAERS Safety Report 24055337 (Version 2)
Quarter: 2024Q3

REPORT INFORMATION
  Report Type: Spontaneous
  Country: JP (occurrence: JP)
  Receive Date: 20240705
  Receipt Date: 20240709
  Transmission Date: 20241017
  Serious: Yes (Other)
  Sender: BAYER
  Company Number: JP-BAYER-2024A095599

PATIENT
  Sex: Female

DRUGS (1)
  1. MIRENA [Suspect]
     Active Substance: LEVONORGESTREL
     Indication: Heavy menstrual bleeding
     Dosage: 20?G/DAY
     Route: 015
     Dates: start: 20190615, end: 20240702

REACTIONS (4)
  - Device breakage [Not Recovered/Not Resolved]
  - Complication of device removal [None]
  - Device difficult to use [None]
  - Procedural pain [None]

NARRATIVE: CASE EVENT DATE: 20240702
